FAERS Safety Report 20303948 (Version 1)
Quarter: 2022Q1

REPORT INFORMATION
  Report Type: Spontaneous
  Country: US (occurrence: US)
  Receive Date: 20220106
  Receipt Date: 20220106
  Transmission Date: 20220423
  Serious: No
  Sender: FDA-Public Use
  Company Number: US-KARYOPHARM-2021KPT001548

PATIENT

DRUGS (21)
  1. XPOVIO [Suspect]
     Active Substance: SELINEXOR
     Indication: Plasma cell myeloma
     Dosage: 40 MG, WEEKLY
     Route: 048
     Dates: start: 20201202, end: 202101
  2. XPOVIO [Suspect]
     Active Substance: SELINEXOR
     Dosage: 20 MG, WEEKLY
     Route: 048
     Dates: start: 2021
  3. RANEXA [Concomitant]
     Active Substance: RANOLAZINE
  4. PROTONIX [Concomitant]
     Active Substance: PANTOPRAZOLE SODIUM
  5. POTASSIUM CHLORIDE [Concomitant]
     Active Substance: POTASSIUM CHLORIDE
  6. LIPITOR [Concomitant]
     Active Substance: ATORVASTATIN CALCIUM
  7. POTASSIUM PHOSPHATE, MONOBASIC [Concomitant]
     Active Substance: POTASSIUM PHOSPHATE, MONOBASIC
  8. LEVOTHYROXINE [Concomitant]
     Active Substance: LEVOTHYROXINE
  9. FOLIC ACID [Concomitant]
     Active Substance: FOLIC ACID
  10. ELIQUIS [Concomitant]
     Active Substance: APIXABAN
  11. CORTEF ACETATE [Concomitant]
     Active Substance: HYDROCORTISONE ACETATE
  12. ATENOLOL [Concomitant]
     Active Substance: ATENOLOL
  13. AMIODARONE [Concomitant]
     Active Substance: AMIODARONE
  14. TRAMADOL [Concomitant]
     Active Substance: TRAMADOL
  15. PROCHLORPERAZINE MALEATE [Concomitant]
     Active Substance: PROCHLORPERAZINE MALEATE
  16. ONDANSETRON [Concomitant]
     Active Substance: ONDANSETRON
  17. ATROPINE SULFATE\DIPHENOXYLATE HYDROCHLORIDE [Concomitant]
     Active Substance: ATROPINE SULFATE\DIPHENOXYLATE HYDROCHLORIDE
  18. DEXAMETHASONE [Concomitant]
     Active Substance: DEXAMETHASONE
  19. DARZALEX [Concomitant]
     Active Substance: DARATUMUMAB
  20. ACYCLOVIR [Concomitant]
     Active Substance: ACYCLOVIR
  21. BORTEZOMIB [Concomitant]
     Active Substance: BORTEZOMIB

REACTIONS (4)
  - Fatigue [Not Recovered/Not Resolved]
  - Dyspnoea [Unknown]
  - Asthenia [Unknown]
  - Nausea [Unknown]

NARRATIVE: CASE EVENT DATE: 20211204
